FAERS Safety Report 6955398-7 (Version None)
Quarter: 2010Q3

REPORT INFORMATION
  Report Type: 
  Country: None (occurrence: None)
  Receive Date: 20100830
  Receipt Date: 20100520
  Transmission Date: 20110219
  Serious: Yes (Other)
  Sender: FDA-Public Use
  Company Number: US-BRISTOL-MYERS SQUIBB COMPANY-15114762

PATIENT
  Sex: Male

DRUGS (1)
  1. SINEMET [Suspect]
     Dosage: DISCONTINUED 4 MONTHS AGO.

REACTIONS (3)
  - DYSPEPSIA [None]
  - GAIT DISTURBANCE [None]
  - NEUROPATHY PERIPHERAL [None]
